FAERS Safety Report 18241441 (Version 2)
Quarter: 2025Q3

REPORT INFORMATION
  Report Type: Spontaneous
  Country: EU (occurrence: EU)
  Receive Date: 20200908
  Receipt Date: 20250724
  Transmission Date: 20251020
  Serious: Yes (Hospitalization, Other)
  Sender: SANOFI AVENTIS
  Company Number: EU-EMA-DD-20200825-AGRAHARI_P-162903

PATIENT
  Age: 87 Year
  Sex: Female
  Weight: 60 kg

DRUGS (22)
  1. INSULIN LISPRO [Interacting]
     Active Substance: INSULIN LISPRO
     Indication: Product used for unknown indication
     Route: 065
  2. NOVALGIN (METAMIZOLE SODIUM) [Interacting]
     Active Substance: METAMIZOLE SODIUM
     Indication: Product used for unknown indication
     Route: 065
  3. CHOLECALCIFEROL [Interacting]
     Active Substance: CHOLECALCIFEROL
     Indication: Product used for unknown indication
     Dosage: 20000 UNK, QW
     Route: 065
  4. ATORVASTATIN CALCIUM [Interacting]
     Active Substance: ATORVASTATIN CALCIUM
     Indication: Product used for unknown indication
     Dosage: 20 MG, QD
     Route: 065
  5. ALLOPURINOL [Interacting]
     Active Substance: ALLOPURINOL
     Indication: Product used for unknown indication
     Dosage: 100 MG, QD
     Route: 065
  6. POLYETHYLENE GLYCOL 3350\POTASSIUM CHLORIDE\SODIUM BICARBONATE\SODIUM [Interacting]
     Active Substance: POLYETHYLENE GLYCOL 3350\POTASSIUM CHLORIDE\SODIUM BICARBONATE\SODIUM CHLORIDE
     Indication: Constipation
     Route: 065
  7. NITROLINGUAL [Interacting]
     Active Substance: NITROGLYCERIN
     Indication: Product used for unknown indication
     Route: 065
  8. PREGABALIN [Interacting]
     Active Substance: PREGABALIN
     Indication: Neuropathy peripheral
     Route: 065
  9. HYALURONATE SODIUM [Interacting]
     Active Substance: HYALURONATE SODIUM
     Indication: Dry eye
     Dosage: UNK UNK, TID
     Route: 065
  10. BISOPROLOL FUMARATE [Interacting]
     Active Substance: BISOPROLOL FUMARATE
     Indication: Product used for unknown indication
     Route: 065
  11. TORSEMIDE [Interacting]
     Active Substance: TORSEMIDE
     Indication: Diuretic therapy
     Route: 065
  12. MIRTAZAPINE [Interacting]
     Active Substance: MIRTAZAPINE
     Indication: Sleep disorder
     Dosage: 15 MG, QD
     Route: 065
  13. POTASSIUM CHLORIDE [Interacting]
     Active Substance: POTASSIUM CHLORIDE
     Indication: Product used for unknown indication
     Dosage: UNK UNK, QD
     Route: 065
  14. PANTOPRAZOLE SODIUM [Interacting]
     Active Substance: PANTOPRAZOLE SODIUM
     Indication: Product used for unknown indication
     Dosage: 20 MG, QD
     Route: 065
  15. XIPAMIDE [Interacting]
     Active Substance: XIPAMIDE
     Indication: Product used for unknown indication
     Dosage: 40 MG, QD
     Route: 065
  16. BENFOTIAMINE [Interacting]
     Active Substance: BENFOTIAMINE
     Indication: Neuropathy peripheral
     Dosage: UNK UNK, QD
     Route: 065
  17. GENTAMICIN [Interacting]
     Active Substance: GENTAMICIN
     Indication: Product used for unknown indication
     Dosage: UNK UNK, QD
     Route: 065
  18. INSULIN NOS [Interacting]
     Active Substance: INSULIN NOS
     Indication: Product used for unknown indication
     Route: 065
  19. ELIQUIS [Interacting]
     Active Substance: APIXABAN
     Indication: Atrial fibrillation
     Dosage: 5 MG, QD (2.5 MG, BID)
     Route: 065
     Dates: start: 2018
  20. ELIQUIS [Interacting]
     Active Substance: APIXABAN
     Indication: Cerebrovascular accident prophylaxis
  21. IRON [Interacting]
     Active Substance: IRON
     Indication: Product used for unknown indication
     Route: 065
  22. COD LIVER OIL\UREA\ZINC OXIDE [Interacting]
     Active Substance: COD LIVER OIL\UREA\ZINC OXIDE
     Indication: Product used for unknown indication
     Route: 065

REACTIONS (2)
  - Gastrointestinal haemorrhage [Unknown]
  - Drug interaction [Unknown]
